FAERS Safety Report 21487698 (Version 1)
Quarter: 2022Q4

REPORT INFORMATION
  Report Type: Spontaneous
  Country: US (occurrence: US)
  Receive Date: 20221020
  Receipt Date: 20221020
  Transmission Date: 20230113
  Serious: No
  Sender: FDA-Public Use
  Company Number: US-ALLERGAN-2212861US

PATIENT
  Sex: Female

DRUGS (2)
  1. LINZESS [Suspect]
     Active Substance: LINACLOTIDE
     Indication: Irritable bowel syndrome
     Dosage: 290 ?G, QD
     Dates: start: 2014
  2. PROBIOTICS NOS [Concomitant]
     Active Substance: PROBIOTICS NOS

REACTIONS (4)
  - Surgery [Unknown]
  - Neurogenic bladder [Unknown]
  - Nerve injury [Unknown]
  - Therapy interrupted [Unknown]
